FAERS Safety Report 9999775 (Version 7)
Quarter: 2014Q3

REPORT INFORMATION
  Report Type: Report from Study
  Country: US (occurrence: US)
  Receive Date: 20140312
  Receipt Date: 20140910
  Transmission Date: 20150326
  Serious: Yes (Death, Hospitalization)
  Sender: FDA-Public Use
  Company Number: US-ACTELION-A-US2014-95729

PATIENT
  Age: 64 Year
  Sex: Female

DRUGS (3)
  1. VELETRI [Suspect]
     Active Substance: EPOPROSTENOL
     Indication: PULMONARY ARTERIAL HYPERTENSION
     Dosage: 93 NG/KG, PER MIN
     Route: 042
     Dates: start: 20101109
  2. VELETRI [Suspect]
     Active Substance: EPOPROSTENOL
     Dosage: 94 NG/KG, PER MIN
     Route: 042
     Dates: end: 20140813
  3. VELETRI [Suspect]
     Active Substance: EPOPROSTENOL
     Dosage: 92 NG/KG, PER MIN
     Route: 042
     Dates: start: 20101206

REACTIONS (11)
  - Fluid retention [Unknown]
  - Transfusion [Unknown]
  - Pulmonary arterial hypertension [Unknown]
  - Condition aggravated [Unknown]
  - Peripheral swelling [Unknown]
  - Death [Fatal]
  - Blood count abnormal [Unknown]
  - Thrombocytopenia [Unknown]
  - Platelet transfusion [Unknown]
  - Cardiac failure congestive [Unknown]
  - Bronchitis [Unknown]

NARRATIVE: CASE EVENT DATE: 2013
